FAERS Safety Report 25255527 (Version 2)
Quarter: 2025Q2

REPORT INFORMATION
  Report Type: Spontaneous
  Country: US (occurrence: US)
  Receive Date: 20250430
  Receipt Date: 20250529
  Transmission Date: 20250716
  Serious: No
  Sender: ROCHE
  Company Number: US-ROCHE-10000267722

PATIENT
  Sex: Female
  Weight: 124.73 kg

DRUGS (1)
  1. RITUXAN [Suspect]
     Active Substance: RITUXIMAB
     Indication: Rheumatoid arthritis
     Dosage: 2 INFUSIONS, 2 WEEKS APART, EVERY 16 WEEKS.
     Route: 042
     Dates: start: 20250306

REACTIONS (1)
  - Bone pain [Not Recovered/Not Resolved]
